FAERS Safety Report 6015214-7 (Version None)
Quarter: 2008Q4

REPORT INFORMATION
  Report Type: 
  Country: None (occurrence: None)
  Receive Date: 20081218
  Receipt Date: 20081211
  Transmission Date: 20090506
  Serious: Yes (Death, Other)
  Sender: FDA-Public Use
  Company Number: 037988

PATIENT
  Age: 79 Year
  Sex: Female

DRUGS (1)
  1. PHENYTOIN SODIUM [Suspect]
     Indication: CONVULSION
     Dosage: 300 MG QAM + 150 MG QPM

REACTIONS (5)
  - CONVULSION [None]
  - HYDRONEPHROSIS [None]
  - NEPHROLITHIASIS [None]
  - PELVIC KIDNEY [None]
  - PYREXIA [None]
